FAERS Safety Report 11096774 (Version 1)
Quarter: 2015Q2

REPORT INFORMATION
  Report Type: Spontaneous
  Country: US (occurrence: US)
  Receive Date: 20150507
  Receipt Date: 20150507
  Transmission Date: 20150821
  Serious: No
  Sender: FDA-Public Use
  Company Number: US-009507513-1505USA001485

PATIENT
  Age: 24 Year
  Sex: Female
  Weight: 70.3 kg

DRUGS (1)
  1. IMPLANON [Suspect]
     Active Substance: ETONOGESTREL
     Indication: CONTRACEPTION
     Dosage: 1 DF (1 ROD FOR 3 YEARS)
     Route: 059
     Dates: start: 20111212

REACTIONS (4)
  - Menstruation irregular [Unknown]
  - Incorrect drug administration duration [Unknown]
  - Implant site irritation [Unknown]
  - Body temperature abnormal [Unknown]

NARRATIVE: CASE EVENT DATE: 201412
